FAERS Safety Report 5503897-7 (Version None)
Quarter: 2007Q4

REPORT INFORMATION
  Report Type: 
  Country: None (occurrence: None)
  Receive Date: 20071101
  Receipt Date: 20071023
  Transmission Date: 20080405
  Serious: Yes (Hospitalization)
  Sender: FDA-Public Use
  Company Number: FR-PURDUE-GBR_2007_0003154

PATIENT
  Age: 83 Year
  Sex: Female

DRUGS (23)
  1. OXYCONTIN [Suspect]
     Indication: ARTHRALGIA
     Dosage: 5 MG, DAILY
     Route: 048
     Dates: start: 20070709, end: 20070717
  2. OXYCONTIN [Suspect]
     Dosage: 10 MG, DAILY
     Route: 048
     Dates: start: 20070718, end: 20070725
  3. OXYCONTIN [Suspect]
     Dosage: 5 MG, DAILY
     Route: 048
     Dates: start: 20070726, end: 20070726
  4. OXYNORM CAPSULES 5 MG [Suspect]
     Indication: ARTHRALGIA
     Dosage: 5 MG, PRN
     Route: 048
     Dates: start: 20070709, end: 20070717
  5. OXYNORM CAPSULES 5 MG [Suspect]
     Dosage: 5 MG, DAILY
     Route: 048
     Dates: start: 20070718, end: 20070718
  6. OXYNORM CAPSULES 5 MG [Suspect]
     Dosage: 10 MG, DAILY
     Route: 048
     Dates: start: 20070719, end: 20070719
  7. OXYNORM CAPSULES 5 MG [Suspect]
     Dosage: 5 MG, DAILY
     Route: 048
     Dates: start: 20070722, end: 20070722
  8. PLAVIX [Concomitant]
     Indication: PROPHYLAXIS
     Dosage: 75 MG, DAILY
     Route: 048
     Dates: start: 20050913
  9. KARDEGIC [Concomitant]
     Indication: PROPHYLAXIS
     Dosage: 75 MG, DAILY
     Route: 048
     Dates: start: 20050913
  10. TENORMIN [Concomitant]
     Indication: HYPERTENSION
     Dosage: 25 MG, DAILY
     Route: 048
     Dates: start: 20050913
  11. TAHOR [Concomitant]
     Indication: HYPERCHOLESTEROLAEMIA
     Dosage: 40 MG, DAILY
     Route: 048
     Dates: start: 20050913
  12. ISOCARD [Concomitant]
     Indication: ANGINA PECTORIS
     Dosage: 1 DF, DAILY
     Route: 048
     Dates: start: 20050913
  13. COVERSYL [Concomitant]
     Indication: HYPERTENSION
     Dosage: 2 MG, DAILY
     Route: 048
     Dates: start: 20050913
  14. TEMESTA [Concomitant]
     Indication: ANXIETY
     Dosage: 1 MG, DAILY
     Route: 048
     Dates: start: 20000101
  15. ZOLOFT [Concomitant]
     Indication: DEPRESSION
     Dosage: 50 MG, DAILY
     Route: 048
     Dates: start: 20020101
  16. ESOMEPRAZOLE [Concomitant]
     Indication: GASTROOESOPHAGEAL REFLUX DISEASE
     Dosage: 20 MG, DAILY
     Route: 048
     Dates: start: 20070525
  17. SODIUM ALGINATE [Concomitant]
     Indication: GASTROOESOPHAGEAL REFLUX DISEASE
     Route: 065
     Dates: start: 20070525
  18. DUPHALAC [Concomitant]
     Indication: CONSTIPATION
     Dosage: 1 TO 3 DOSES UNIT, DAILY
     Route: 048
     Dates: start: 20070525
  19. METOCLOPRAMIDE HCL [Concomitant]
     Indication: NAUSEA
     Dosage: 2 TABLET, DAILY
     Route: 048
     Dates: start: 20070525
  20. FORLAX [Concomitant]
     Indication: CONSTIPATION
     Dosage: 3 DF, DAILY
     Route: 048
     Dates: start: 20070723
  21. MAG 2 [Concomitant]
     Indication: MAGNESIUM DEFICIENCY
     Dosage: 300 MG, DAILY
     Route: 048
     Dates: start: 20070525
  22. DIFFU K [Concomitant]
     Indication: HYPOKALAEMIA
     Dosage: 600 MG, DAILY
     Route: 048
     Dates: start: 20070525
  23. ZOMETA [Concomitant]
     Indication: DRUG USE FOR UNKNOWN INDICATION
     Route: 065

REACTIONS (2)
  - CONFUSIONAL STATE [None]
  - RENAL FAILURE ACUTE [None]
